FAERS Safety Report 8814782 (Version 2)
Quarter: 2012Q4

REPORT INFORMATION
  Report Type: 
  Country: US (occurrence: US)
  Receive Date: 20120928
  Receipt Date: 20121126
  Transmission Date: 20130627
  Serious: Yes (Hospitalization)
  Sender: FDA-Public Use
  Company Number: US-BAYER-2012-099868

PATIENT
  Age: 44 Year
  Sex: Female
  Weight: 88.89 kg

DRUGS (1)
  1. YAZ [Suspect]
     Indication: CONTRACEPTION
     Dosage: UNK
     Route: 048
     Dates: start: 20070228

REACTIONS (2)
  - Deep vein thrombosis [None]
  - Pain in extremity [None]
